APPROVED DRUG PRODUCT: LEVOFLOXACIN IN DEXTROSE 5% IN PLASTIC CONTAINER
Active Ingredient: LEVOFLOXACIN
Strength: EQ 500MG/100ML (EQ 5MG/ML)
Dosage Form/Route: INJECTABLE;INJECTION
Application: A216164 | Product #002
Applicant: KNACK PHARMACEUTICALS INC
Approved: Jan 29, 2024 | RLD: No | RS: No | Type: DISCN